FAERS Safety Report 19061964 (Version 2)
Quarter: 2021Q3

REPORT INFORMATION
  Report Type: Report from Study
  Country: US (occurrence: US)
  Receive Date: 20210325
  Receipt Date: 20210910
  Transmission Date: 20211014
  Serious: No
  Sender: FDA-Public Use
  Company Number: US-ACADIA PHARMACEUTICALS INC.-ACA-2021-PIM-000825

PATIENT
  Age: 78 Year
  Sex: Female
  Weight: 73 kg

DRUGS (3)
  1. NUPLAZID [Suspect]
     Active Substance: PIMAVANSERIN TARTRATE
     Indication: PARKINSON^S DISEASE PSYCHOSIS
     Dosage: 34 MILLIGRAM, QD
     Route: 048
     Dates: start: 20210226
  2. NUPLAZID [Suspect]
     Active Substance: PIMAVANSERIN TARTRATE
     Indication: HALLUCINATION
  3. NUPLAZID [Suspect]
     Active Substance: PIMAVANSERIN TARTRATE
     Indication: DELUSION

REACTIONS (14)
  - Musculoskeletal stiffness [Recovering/Resolving]
  - Burning sensation [Recovering/Resolving]
  - Burning sensation [Unknown]
  - Insomnia [Recovering/Resolving]
  - Oral discomfort [Recovering/Resolving]
  - Hallucination, auditory [Unknown]
  - Eye irritation [Recovering/Resolving]
  - Hallucination [Unknown]
  - Confusional state [Unknown]
  - Energy increased [Unknown]
  - Fatigue [Unknown]
  - Gait disturbance [Recovering/Resolving]
  - Therapeutic response unexpected [Unknown]
  - Hallucination, visual [Unknown]

NARRATIVE: CASE EVENT DATE: 20210227
